FAERS Safety Report 14183436 (Version 1)
Quarter: 2017Q4

REPORT INFORMATION
  Report Type: Spontaneous
  Country: JP (occurrence: JP)
  Receive Date: 20171113
  Receipt Date: 20171113
  Transmission Date: 20180321
  Serious: Yes (Other)
  Sender: FDA-Public Use
  Company Number: JP-BAYER-2017-213570

PATIENT
  Age: 65 Year
  Sex: Male

DRUGS (1)
  1. XOFIGO [Suspect]
     Active Substance: RADIUM RA-223 DICHLORIDE
     Dosage: UNK UNK, Q1MON
     Route: 042
     Dates: start: 20171003, end: 20171031

REACTIONS (1)
  - Hormone-refractory prostate cancer [None]

NARRATIVE: CASE EVENT DATE: 20171031
